FAERS Safety Report 12859131 (Version 1)
Quarter: 2016Q4

REPORT INFORMATION
  Report Type: Spontaneous
  Country: TR (occurrence: TR)
  Receive Date: 20161018
  Receipt Date: 20161018
  Transmission Date: 20170207
  Serious: Yes (Other)
  Sender: FDA-Public Use
  Company Number: TR-IPCA LABORATORIES LIMITED-IPC201610-000855

PATIENT
  Age: 27 Year
  Sex: Male

DRUGS (1)
  1. WARFARIN [Suspect]
     Active Substance: WARFARIN
     Indication: PULMONARY EMBOLISM

REACTIONS (1)
  - Hypersensitivity vasculitis [Recovering/Resolving]
